FAERS Safety Report 19777353 (Version 1)
Quarter: 2021Q3

REPORT INFORMATION
  Report Type: Spontaneous
  Country: US (occurrence: US)
  Receive Date: 20210830
  Receipt Date: 20210830
  Transmission Date: 20211014
  Serious: No
  Sender: FDA-Public Use
  Company Number: None

PATIENT
  Age: 65 Year
  Sex: Female
  Weight: 87 kg

DRUGS (1)
  1. IOHEXOL (IOHEXOL 755MG/ML INJ) [Suspect]
     Active Substance: IOHEXOL
     Indication: COLITIS
     Dosage: ?          OTHER ROUTE:IV?
     Dates: start: 20210721, end: 20210721

REACTIONS (8)
  - Nausea [None]
  - Vomiting [None]
  - Seizure [None]
  - Sedation [None]
  - Tremor [None]
  - Altered state of consciousness [None]
  - Erythema [None]
  - Dizziness [None]

NARRATIVE: CASE EVENT DATE: 20210721
